FAERS Safety Report 4771637-5 (Version None)
Quarter: 2005Q3

REPORT INFORMATION
  Report Type: 
  Country: None (occurrence: None)
  Receive Date: 20050916
  Receipt Date: 20050901
  Transmission Date: 20060218
  Serious: Yes (Disabling)
  Sender: FDA-Public Use
  Company Number: GBWYE946501SEP05

PATIENT
  Age: 64 Year
  Sex: Female

DRUGS (3)
  1. ENBREL [Suspect]
     Indication: RHEUMATOID ARTHRITIS
     Dosage: 25MG FREQUENCY UNKNOWN
     Route: 058
     Dates: start: 20030101
  2. CELECOXIB [Concomitant]
     Route: 048
  3. CETIRIZINE HCL [Concomitant]
     Route: 048

REACTIONS (5)
  - ARTHRITIS [None]
  - DECREASED ACTIVITY [None]
  - DIFFICULTY IN WALKING [None]
  - MOBILITY DECREASED [None]
  - NODULE [None]
